FAERS Safety Report 24036445 (Version 3)
Quarter: 2024Q3

REPORT INFORMATION
  Report Type: Spontaneous
  Country: FR (occurrence: FR)
  Receive Date: 20240701
  Receipt Date: 20240906
  Transmission Date: 20241017
  Serious: Yes (Death)
  Sender: INCYTE
  Company Number: FR-002147023-NVSC2024FR135400

PATIENT

DRUGS (2)
  1. RUXOLITINIB [Suspect]
     Active Substance: RUXOLITINIB
     Indication: Myelofibrosis
     Dosage: 20 MG
     Route: 065
  2. BISOPROLOL [Concomitant]
     Active Substance: BISOPROLOL\BISOPROLOL FUMARATE
     Indication: Product used for unknown indication
     Dosage: 1.25 MG
     Route: 065

REACTIONS (4)
  - Cerebral haemorrhage [Fatal]
  - General physical health deterioration [Unknown]
  - Product temperature excursion issue [Unknown]
  - Product dose omission issue [Unknown]
